FAERS Safety Report 20388159 (Version 1)
Quarter: 2022Q1

REPORT INFORMATION
  Report Type: Spontaneous
  Country: US (occurrence: US)
  Receive Date: 20220128
  Receipt Date: 20220128
  Transmission Date: 20220423
  Serious: No
  Sender: FDA-Public Use
  Company Number: US-LUPIN PHARMACEUTICALS INC.-2022-00930

PATIENT
  Age: 29 Year
  Sex: Female

DRUGS (2)
  1. HYDROXYCHLOROQUINE [Suspect]
     Active Substance: HYDROXYCHLOROQUINE
     Indication: Antiphospholipid syndrome
     Dosage: 200 MILLIGRAM
     Route: 065
  2. PRAVASTATIN [Suspect]
     Active Substance: PRAVASTATIN
     Indication: Antiphospholipid syndrome
     Dosage: 20 MILLIGRAM
     Route: 065

REACTIONS (1)
  - Exposure during pregnancy [Unknown]
